FAERS Safety Report 10097235 (Version 3)
Quarter: 2014Q2

REPORT INFORMATION
  Report Type: Report from Study
  Country: AU (occurrence: AU)
  Receive Date: 20140422
  Receipt Date: 20140604
  Transmission Date: 20141212
  Serious: Yes (Disabling, Other)
  Sender: FDA-Public Use
  Company Number: PHHY2014AU047951

PATIENT
  Age: 62 Year
  Sex: Female

DRUGS (18)
  1. ACLASTA [Suspect]
     Dosage: 5 MG, UNK
     Route: 042
     Dates: start: 20120310
  2. ACLASTA [Suspect]
     Dosage: 5 MG, UNK
     Route: 042
     Dates: start: 20130318
  3. ANUSOL                             /00117301/ [Concomitant]
     Dosage: UNK, STRENGTH: 10.75 / 1.88 / 1.25 %
     Route: 061
  4. CHOLECALCIFEROL [Concomitant]
     Dosage: 2 DF, DAILY
     Route: 048
  5. CLOFEN [Concomitant]
     Dosage: 1 DF, TID
     Route: 048
  6. DIAZEPAM [Concomitant]
     Dosage: 1/2 TO 1 DAILY PRN
     Route: 048
  7. ENDONE [Concomitant]
     Dosage: 1 DF, BID, PRN
     Route: 048
  8. HYDROZOLE [Concomitant]
     Dosage: 1 DF, BID
     Route: 061
  9. HYDROZOLE [Concomitant]
     Dosage: 1 DF, TID
     Route: 061
  10. LIPITOR [Concomitant]
     Indication: MINERAL SUPPLEMENTATION
     Dosage: 1 DF, NOCTE M D U
     Route: 048
  11. LYRICA [Concomitant]
     Dosage: 1 DF, BID
     Route: 048
  12. CALCIUM [Concomitant]
     Dosage: UNK UKN, UNK
  13. NEXIUM//ESOMEPRAZOLE MAGNESIUM [Concomitant]
     Dosage: 1 DF, DAILY
     Route: 048
  14. OXYBUTYNIN HYDROCHLORIDE [Concomitant]
     Dosage: 1 DF, TID
     Route: 048
  15. OXYCONTIN [Concomitant]
     Dosage: 1 DF, BID
     Route: 048
  16. PANADOL OSTEO [Concomitant]
     Dosage: 2 DF, Q8H
     Route: 048
  17. PLAVIX [Concomitant]
     Dosage: 1 DF, DAILY
     Route: 048
  18. STEMETIL//PROCHLORPERAZINE MALEATE [Concomitant]
     Dosage: 1 DF, Q8H
     Route: 048

REACTIONS (5)
  - Quadriplegia [Unknown]
  - Vitamin D decreased [Unknown]
  - Blood bicarbonate increased [Unknown]
  - Blood alkaline phosphatase decreased [Unknown]
  - Blood potassium increased [Unknown]
